FAERS Safety Report 6043022-X (Version None)
Quarter: 2009Q1

REPORT INFORMATION
  Report Type: 
  Country: None (occurrence: None)
  Receive Date: 20090119
  Receipt Date: 20090106
  Transmission Date: 20090719
  Serious: Yes (Hospitalization)
  Sender: FDA-Public Use
  Company Number: US-ELI_LILLY_AND_COMPANY-US200810003979

PATIENT
  Age: 72 Year
  Sex: Female

DRUGS (2)
  1. FORTEO [Suspect]
     Dosage: UNK, UNK
     Dates: start: 20080909
  2. PREDNISONE [Concomitant]
     Dates: start: 20070301

REACTIONS (6)
  - DYSPNOEA [None]
  - INFLUENZA [None]
  - INTRAOCULAR PRESSURE INCREASED [None]
  - NASOPHARYNGITIS [None]
  - OXYGEN SATURATION DECREASED [None]
  - PYREXIA [None]
